FAERS Safety Report 7202623-3 (Version None)
Quarter: 2010Q4

REPORT INFORMATION
  Report Type: 
  Country: None (occurrence: None)
  Receive Date: 20101206
  Receipt Date: 20101125
  Transmission Date: 20110411
  Serious: Yes (Death)
  Sender: FDA-Public Use
  Company Number: CA-145105

PATIENT
  Age: 67 Year
  Sex: Male

DRUGS (5)
  1. WINRHO [Suspect]
  2. GAMUNEX [Concomitant]
  3. ASPIRIN [Concomitant]
  4. APO-SULFATRIM [Concomitant]
  5. NORVASC [Concomitant]

REACTIONS (4)
  - COOMBS DIRECT TEST POSITIVE [None]
  - DRUG SPECIFIC ANTIBODY PRESENT [None]
  - HAEMOLYSIS [None]
  - THROMBOCYTOPENIA [None]
